FAERS Safety Report 8805954 (Version 1)
Quarter: 2012Q4

REPORT INFORMATION
  Report Type: Spontaneous
  Country: US (occurrence: None)
  Receive Date: 20120919
  Receipt Date: 20120919
  Transmission Date: 20130627
  Serious: Yes (Hospitalization)
  Sender: FDA-Public Use
  Company Number: None

PATIENT
  Age: 33 Year
  Sex: Female
  Weight: 72.12 kg

DRUGS (1)
  1. FERRLECIT [Suspect]
     Route: 042
     Dates: start: 20120629, end: 20120629

REACTIONS (2)
  - Pain in extremity [None]
  - Paraesthesia [None]
